FAERS Safety Report 6270818-1 (Version None)
Quarter: 2009Q3

REPORT INFORMATION
  Report Type: 
  Country: None (occurrence: None)
  Receive Date: 20090716
  Receipt Date: 20090714
  Transmission Date: 20100115
  Serious: Yes (Death)
  Sender: FDA-Public Use
  Company Number: GB-ABBOTT-09P-167-0585196-00

PATIENT
  Age: 78 Year

DRUGS (3)
  1. HUMIRA [Suspect]
     Indication: RHEUMATOID ARTHRITIS
     Route: 058
     Dates: start: 20081201, end: 20090325
  2. METHOTREXATE [Concomitant]
     Indication: RHEUMATOID ARTHRITIS
     Dosage: WEEKLY DOSE: 20
     Route: 058
     Dates: start: 20040701
  3. SALAZOPYRIN [Concomitant]
     Indication: RHEUMATOID ARTHRITIS
     Dates: start: 20070401, end: 20081201

REACTIONS (1)
  - PNEUMONITIS [None]
